FAERS Safety Report 5611424-9 (Version None)
Quarter: 2008Q1

REPORT INFORMATION
  Report Type: 
  Country: None (occurrence: None)
  Receive Date: 20080201
  Receipt Date: 20080121
  Transmission Date: 20080703
  Serious: Yes (Other)
  Sender: FDA-Public Use
  Company Number: NL-PFIZER INC-2008007679

PATIENT
  Sex: Male
  Weight: 81 kg

DRUGS (1)
  1. MARAVIROC [Suspect]
     Indication: HIV TEST POSITIVE
     Route: 048

REACTIONS (1)
  - SQUAMOUS CELL CARCINOMA [None]
